FAERS Safety Report 20299295 (Version 1)
Quarter: 2022Q1

REPORT INFORMATION
  Report Type: Spontaneous
  Country: CN (occurrence: CN)
  Receive Date: 20220105
  Receipt Date: 20220105
  Transmission Date: 20220423
  Serious: Yes (Hospitalization)
  Sender: FDA-Public Use
  Company Number: CN-ELI_LILLY_AND_COMPANY-CN202112009335

PATIENT
  Sex: Female

DRUGS (3)
  1. HUMALOG MIX50/50 [Suspect]
     Active Substance: INSULIN LISPRO
     Indication: Diabetes mellitus
     Dosage: UNK, UNKNOWN
     Route: 065
     Dates: start: 2017
  2. HUMALOG MIX50/50 [Suspect]
     Active Substance: INSULIN LISPRO
     Dosage: 14 U, DAILY (NIGHT)
     Route: 065
     Dates: start: 2017
  3. GLUCOBAY [Concomitant]
     Active Substance: ACARBOSE
     Indication: Diabetes mellitus

REACTIONS (1)
  - Diabetes mellitus inadequate control [Unknown]
